FAERS Safety Report 10945833 (Version 2)
Quarter: 2015Q2

REPORT INFORMATION
  Report Type: Report from Study
  Country: US (occurrence: US)
  Receive Date: 20150323
  Receipt Date: 20150406
  Transmission Date: 20150821
  Serious: Yes (Other)
  Sender: FDA-Public Use
  Company Number: US-BAYER-2015-044171

PATIENT
  Age: 78 Year
  Sex: Male

DRUGS (1)
  1. NEXAVAR [Suspect]
     Active Substance: SORAFENIB
     Indication: RENAL CELL CARCINOMA
     Dosage: 200 MG, BID
     Route: 048
     Dates: start: 20150220, end: 20150305

REACTIONS (5)
  - Aphonia [Recovering/Resolving]
  - Speech disorder [Recovering/Resolving]
  - Lip swelling [Recovering/Resolving]
  - Renal cell carcinoma [None]
  - Rash [Recovering/Resolving]

NARRATIVE: CASE EVENT DATE: 20150303
